FAERS Safety Report 12642897 (Version 1)
Quarter: 2016Q3

REPORT INFORMATION
  Report Type: Spontaneous
  Country: US (occurrence: US)
  Receive Date: 20160811
  Receipt Date: 20160811
  Transmission Date: 20161109
  Serious: Yes (Other)
  Sender: FDA-Public Use
  Company Number: US-TEVA-682717ACC

PATIENT
  Age: 32 Year
  Sex: Female
  Weight: 46.31 kg

DRUGS (2)
  1. NOR-QD [Concomitant]
     Active Substance: NORETHINDRONE
  2. PARAGARD T 380A [Suspect]
     Active Substance: COPPER
     Indication: CONTRACEPTION
     Dates: start: 20151204, end: 20160726

REACTIONS (4)
  - Menorrhagia [Unknown]
  - Exposure during breast feeding [Unknown]
  - Device dislocation [Recovered/Resolved]
  - Muscle spasms [Unknown]

NARRATIVE: CASE EVENT DATE: 20151204
